FAERS Safety Report 8210433-3 (Version None)
Quarter: 2012Q1

REPORT INFORMATION
  Report Type: 
  Country: None (occurrence: None)
  Receive Date: 20120314
  Receipt Date: 20120217
  Transmission Date: 20120608
  Serious: No
  Sender: FDA-Public Use
  Company Number: US-ASTRAZENECA-2012SE11538

PATIENT
  Sex: Female

DRUGS (3)
  1. TOPROL-XL [Suspect]
     Indication: HYPERTENSION
     Route: 048
  2. AVAPRO [Concomitant]
     Indication: HYPERTENSION
  3. TOPROL-XL [Suspect]
     Dosage: 25 MG GENERIC
     Route: 048

REACTIONS (5)
  - DYSPNOEA [None]
  - SINUSITIS [None]
  - HYPOTENSION [None]
  - WEIGHT DECREASED [None]
  - HEADACHE [None]
